FAERS Safety Report 12504332 (Version 1)
Quarter: 2016Q2

REPORT INFORMATION
  Report Type: Spontaneous
  Country: FR (occurrence: FR)
  Receive Date: 20160628
  Receipt Date: 20160628
  Transmission Date: 20160815
  Serious: Yes (Hospitalization, Disabling)
  Sender: FDA-Public Use
  Company Number: FR-ROCHE-1784067

PATIENT
  Age: 81 Year
  Sex: Female

DRUGS (10)
  1. LASILIX [Concomitant]
     Active Substance: FUROSEMIDE
  2. TARDYFERON (FRANCE) [Concomitant]
  3. SPASFON (FRANCE) [Concomitant]
     Active Substance: PHLOROGLUCINOL
  4. OXYNORMORO [Concomitant]
     Active Substance: OXYCODONE
  5. DIFFU K [Concomitant]
     Active Substance: POTASSIUM CHLORIDE
  6. KARDEGIC [Concomitant]
     Active Substance: ASPIRIN LYSINE
  7. ZELBORAF [Suspect]
     Active Substance: VEMURAFENIB
     Indication: MALIGNANT MELANOMA
     Route: 048
     Dates: start: 20151016
  8. COTELLIC [Suspect]
     Active Substance: COBIMETINIB
     Indication: MALIGNANT MELANOMA
     Route: 048
     Dates: start: 20151129, end: 20151226
  9. DOLIPRANE [Concomitant]
     Active Substance: ACETAMINOPHEN
  10. SPECIAFOLDINE [Concomitant]
     Active Substance: FOLIC ACID

REACTIONS (1)
  - Pulmonary hypertension [Not Recovered/Not Resolved]

NARRATIVE: CASE EVENT DATE: 201603
